FAERS Safety Report 9257456 (Version 1)
Quarter: 2013Q2

REPORT INFORMATION
  Report Type: Spontaneous
  Country: US (occurrence: None)
  Receive Date: 20130424
  Receipt Date: 20130424
  Transmission Date: 20140414
  Serious: No
  Sender: FDA-Public Use
  Company Number: None

PATIENT
  Age: 90 Year
  Sex: Male

DRUGS (1)
  1. FERUMOXYTOL [Suspect]
     Indication: IRON DEFICIENCY ANAEMIA
     Dosage: OTHER
     Route: 042
     Dates: start: 20130329, end: 20130329

REACTIONS (4)
  - Anxiety [None]
  - Chills [None]
  - Arthralgia [None]
  - Chills [None]
